FAERS Safety Report 17830161 (Version 1)
Quarter: 2020Q2

REPORT INFORMATION
  Report Type: Spontaneous
  Country: US (occurrence: US)
  Receive Date: 20200527
  Receipt Date: 20200527
  Transmission Date: 20200714
  Serious: Yes (Death, Hospitalization)
  Sender: FDA-Public Use
  Company Number: US-MYLANLABS-2020M1052041

PATIENT
  Age: 3 Month
  Sex: Male

DRUGS (11)
  1. MILRINONE [Suspect]
     Active Substance: MILRINONE
     Indication: PULMONARY HYPERTENSION
     Dosage: UNK
     Route: 065
  2. DOPAMINE [Suspect]
     Active Substance: DOPAMINE HYDROCHLORIDE
     Indication: RESPIRATORY FAILURE
     Dosage: UNK
     Route: 065
  3. FENTANYL. [Suspect]
     Active Substance: FENTANYL
     Indication: DRUG THERAPY
     Dosage: UNK
     Route: 065
  4. MIDAZOLAM. [Suspect]
     Active Substance: MIDAZOLAM
     Indication: DRUG THERAPY
     Dosage: UNK
     Route: 065
  5. VASOPRESSIN. [Suspect]
     Active Substance: VASOPRESSIN
     Indication: RESPIRATORY FAILURE
     Dosage: UNK
     Route: 065
  6. STRENSIQ [Concomitant]
     Active Substance: ASFOTASE ALFA
     Dosage: THREE TIMES A WEEK
     Route: 058
  7. TYLENOL [Concomitant]
     Active Substance: ACETAMINOPHEN
     Indication: PAIN
     Dosage: UNK
     Route: 065
  8. DEXMEDETOMIDINE. [Suspect]
     Active Substance: DEXMEDETOMIDINE
     Indication: DRUG THERAPY
     Dosage: UNK
     Route: 065
  9. MORPHINE [Concomitant]
     Active Substance: MORPHINE
     Indication: PAIN
     Dosage: UNK
     Route: 065
  10. STRENSIQ [Concomitant]
     Active Substance: ASFOTASE ALFA
     Dosage: THREE TIMES A WEEK
     Route: 058
  11. NITRIC OXIDE. [Suspect]
     Active Substance: NITRIC OXIDE
     Indication: PULMONARY HYPERTENSION
     Dosage: UNK
     Route: 065

REACTIONS (1)
  - Therapy non-responder [Fatal]
